FAERS Safety Report 4383565-8 (Version None)
Quarter: 2004Q2

REPORT INFORMATION
  Report Type: 
  Country: None (occurrence: None)
  Receive Date: 20040614
  Receipt Date: 20030509
  Transmission Date: 20050107
  Serious: Yes (Other)
  Sender: FDA-Public Use
  Company Number: 2003144661US

PATIENT
  Age: 15 Year
  Sex: Female

DRUGS (20)
  1. ZYVOX [Suspect]
     Indication: GLYCOPEPTIDE ANTIBIOTIC RESISTANT ENTEROCOCCAL INFECTION
     Dosage: 600 MG, BID, ORAL
     Route: 048
     Dates: start: 20030123
  2. GUAIFENESIN [Concomitant]
  3. MIRILAX [Concomitant]
  4. MULTIVITE (RETINOL, ERGOCALCIFEROL) [Concomitant]
  5. FAMOTIDINE [Concomitant]
  6. LOPERAMIDE HCL [Concomitant]
  7. COMBIVENT [Concomitant]
  8. HALOPERIDOL [Concomitant]
  9. EPOETIN ALFA [Concomitant]
  10. NYSTATIN [Concomitant]
  11. POTASSIUM CHLORIDE [Concomitant]
  12. ISOPTO PLAIN (HYPROMELLOSE) [Concomitant]
  13. MORPHINE [Concomitant]
  14. MIDAZOLAM [Concomitant]
  15. LOVENOX [Concomitant]
  16. DIPRIVAN [Concomitant]
  17. TRAZODONE HCL [Concomitant]
  18. ACETAMINOPHEN [Concomitant]
  19. NEOSPORIN [Concomitant]
  20. SIMETHICONE (DIMETICONE, ACTIVATED) [Concomitant]

REACTIONS (1)
  - GRAND MAL CONVULSION [None]
